FAERS Safety Report 9959093 (Version 1)
Quarter: 2014Q1

REPORT INFORMATION
  Report Type: Report from Study
  Country: US (occurrence: US)
  Receive Date: 20140305
  Receipt Date: 20140305
  Transmission Date: 20141002
  Serious: No
  Sender: FDA-Public Use
  Company Number: US-ABBVIE-13P-163-1104408-00

PATIENT
  Age: 52 Year
  Sex: Female

DRUGS (14)
  1. HUMIRA [Suspect]
     Indication: PSORIASIS
     Dates: start: 201207, end: 201304
  2. HUMIRA [Suspect]
     Dates: start: 20130607
  3. LISINOPRIL [Concomitant]
     Indication: PROPHYLAXIS
  4. METFORMIN [Concomitant]
     Indication: DIABETES MELLITUS
  5. LANTUS [Concomitant]
     Indication: DIABETES MELLITUS
  6. LYRICA [Concomitant]
     Indication: DIABETIC NEUROPATHY
  7. GEMFIBROZIL [Concomitant]
     Indication: BLOOD CHOLESTEROL
  8. DETROL LA [Concomitant]
     Indication: BLADDER DISORDER
  9. ZAROXOLYN [Concomitant]
     Indication: DIURETIC THERAPY
  10. LEVOTHYROXINE [Concomitant]
     Indication: THYROID DISORDER
  11. VITAMIN C [Concomitant]
     Indication: PRODUCT USED FOR UNKNOWN INDICATION
  12. CALCIUM [Concomitant]
     Indication: PRODUCT USED FOR UNKNOWN INDICATION
  13. MORPHINE [Concomitant]
     Indication: PAIN
  14. ZYRTEC [Concomitant]
     Indication: HYPERSENSITIVITY

REACTIONS (1)
  - Condition aggravated [Not Recovered/Not Resolved]
